FAERS Safety Report 22529802 (Version 3)
Quarter: 2023Q4

REPORT INFORMATION
  Report Type: Spontaneous
  Country: JP (occurrence: None)
  Receive Date: 20230607
  Receipt Date: 20231227
  Transmission Date: 20240110
  Serious: Yes (Death)
  Sender: FDA-Public Use
  Company Number: 2023A129570

PATIENT
  Age: 75 Year
  Sex: Male
  Weight: 51 kg

DRUGS (11)
  1. LOKELMA [Suspect]
     Active Substance: SODIUM ZIRCONIUM CYCLOSILICATE
     Indication: Hyperkalaemia
     Route: 048
     Dates: start: 20230129, end: 20230228
  2. NIFEDIPINE [Concomitant]
     Active Substance: NIFEDIPINE
     Route: 048
     Dates: end: 20230228
  3. LEVETIRACETAM [Concomitant]
     Active Substance: LEVETIRACETAM
     Indication: Epilepsy
     Route: 048
     Dates: end: 20230228
  4. LINZESS [Concomitant]
     Active Substance: LINACLOTIDE
     Route: 048
     Dates: end: 20230228
  5. FEBUXOSTAT [Concomitant]
     Active Substance: FEBUXOSTAT
     Route: 048
     Dates: end: 20230228
  6. PRAVASTATIN SODIUM [Concomitant]
     Active Substance: PRAVASTATIN SODIUM
     Route: 048
     Dates: end: 20230228
  7. AZILSARTAN KAMEDOXOMIL [Concomitant]
     Active Substance: AZILSARTAN KAMEDOXOMIL
     Route: 048
     Dates: end: 20230228
  8. TSUMURA KEISHIKASHAKUYAKUDAIOTO [Concomitant]
     Dosage: DOSE UNKNOWN
     Route: 048
     Dates: start: 20230129, end: 20230228
  9. KREMEZIN [Concomitant]
     Active Substance: ACTIVATED CHARCOAL
     Indication: Chronic kidney disease
     Dosage: AFTER BREAKFAST, LUNCH, AND DINNER
     Route: 048
     Dates: start: 20220809, end: 20220812
  10. KREMEZIN [Concomitant]
     Active Substance: ACTIVATED CHARCOAL
     Indication: Chronic kidney disease
     Route: 048
     Dates: start: 20220813
  11. DARBEPOETIN ALFA [Concomitant]
     Active Substance: DARBEPOETIN ALFA
     Route: 058
     Dates: start: 20220823

REACTIONS (4)
  - Cardiac failure congestive [Fatal]
  - Hypoaesthesia [Fatal]
  - Underdose [Unknown]
  - Off label use [Unknown]

NARRATIVE: CASE EVENT DATE: 20230302
